FAERS Safety Report 21754404 (Version 1)
Quarter: 2022Q4

REPORT INFORMATION
  Report Type: Spontaneous
  Country: IT (occurrence: IT)
  Receive Date: 20221220
  Receipt Date: 20221220
  Transmission Date: 20230113
  Serious: Yes (Other)
  Sender: FDA-Public Use
  Company Number: IT-PFIZER INC-202201374739

PATIENT
  Sex: Female

DRUGS (1)
  1. LINCOCIN [Suspect]
     Active Substance: LINCOMYCIN
     Dosage: UNK

REACTIONS (4)
  - Pulmonary haemorrhage [Unknown]
  - Intestinal haemorrhage [Unknown]
  - Hypersensitivity [Unknown]
  - Paraesthesia oral [Unknown]
